FAERS Safety Report 9844409 (Version 1)
Quarter: 2014Q1

REPORT INFORMATION
  Report Type: Spontaneous
  Country: US (occurrence: None)
  Receive Date: 20140123
  Receipt Date: 20140123
  Transmission Date: 20141002
  Serious: Yes (Other)
  Sender: FDA-Public Use
  Company Number: None

PATIENT
  Age: 65 Year
  Sex: Female
  Weight: 64.41 kg

DRUGS (1)
  1. LEVAQUIN [Suspect]
     Indication: DIVERTICULITIS
     Route: 048

REACTIONS (5)
  - Paraesthesia [None]
  - Burning sensation [None]
  - Musculoskeletal pain [None]
  - Myalgia [None]
  - Arthralgia [None]
